FAERS Safety Report 16049686 (Version 2)
Quarter: 2019Q1

REPORT INFORMATION
  Report Type: Report from Study
  Country: None (occurrence: GB)
  Receive Date: 20190307
  Receipt Date: 20190308
  Transmission Date: 20190418
  Serious: Yes (Other)
  Sender: FDA-Public Use
  Company Number: GB-ABBVIE-19S-167-2686845-00

PATIENT
  Sex: Male

DRUGS (3)
  1. DUODOPA [Suspect]
     Active Substance: CARBIDOPA\LEVODOPA
     Indication: PARKINSON^S DISEASE
     Dosage: 100ML CASSETTE PER DAY CRD 2.5 ML/HR
     Route: 050
  2. DUODOPA [Suspect]
     Active Substance: CARBIDOPA\LEVODOPA
     Dosage: 100ML CASSETTE PER DAY CRD 2.7ML/HR
     Route: 050
  3. DUODOPA [Suspect]
     Active Substance: CARBIDOPA\LEVODOPA
     Dosage: 5MG/1ML, 20MG/1ML CONTINUOUS RATE 2.8ML/HR
     Route: 050

REACTIONS (9)
  - Testicular pain [Unknown]
  - Dystonia [Unknown]
  - Anxiety [Unknown]
  - Surgery [Unknown]
  - Varicocele [Unknown]
  - Hallucination, auditory [Unknown]
  - Pain in extremity [Unknown]
  - Abnormal dreams [Unknown]
  - Bradykinesia [Unknown]
